FAERS Safety Report 11769086 (Version 2)
Quarter: 2016Q1

REPORT INFORMATION
  Report Type: Spontaneous
  Country: US (occurrence: US)
  Receive Date: 20151123
  Receipt Date: 20160208
  Transmission Date: 20160525
  Serious: No
  Sender: FDA-Public Use
  Company Number: US-ASTRAZENECA-2015SF12046

PATIENT
  Age: 940 Month
  Sex: Female

DRUGS (1)
  1. SYMBICORT [Suspect]
     Active Substance: BUDESONIDE\FORMOTEROL FUMARATE DIHYDRATE
     Indication: CHRONIC OBSTRUCTIVE PULMONARY DISEASE
     Dosage: 80/4.5 MCG, TWO PUFFS TWO TIMES A DAY
     Route: 055
     Dates: start: 2013

REACTIONS (6)
  - Dysphonia [Unknown]
  - Drug dose omission [Unknown]
  - Dyspnoea [Unknown]
  - Abasia [Unknown]
  - Product quality issue [Unknown]
  - Feeling abnormal [Unknown]

NARRATIVE: CASE EVENT DATE: 201511
